FAERS Safety Report 8838095 (Version 3)
Quarter: 2013Q4

REPORT INFORMATION
  Report Type: Spontaneous
  Country: JP (occurrence: JP)
  Receive Date: 20121012
  Receipt Date: 20131003
  Transmission Date: 20140711
  Serious: Yes (Death)
  Sender: FDA-Public Use
  Company Number: JP-ROCHE-1144860

PATIENT
  Age: 71 Year
  Sex: Male
  Weight: 44 kg

DRUGS (12)
  1. ACTEMRA [Suspect]
     Indication: RHEUMATOID ARTHRITIS
     Route: 041
     Dates: start: 20120330, end: 20120622
  2. PREDNISOLONE [Concomitant]
     Indication: RHEUMATOID ARTHRITIS
     Route: 065
     Dates: end: 20120806
  3. ALFAROL [Concomitant]
     Indication: RENAL FAILURE CHRONIC
     Route: 048
     Dates: end: 20120806
  4. TAKEPRON [Concomitant]
     Indication: GASTRITIS
     Route: 048
     Dates: end: 20120806
  5. PLETAAL [Concomitant]
     Indication: ARTERIAL OCCLUSIVE DISEASE
     Route: 048
     Dates: start: 20110802, end: 20120806
  6. CALTAN [Concomitant]
     Indication: HYPERPHOSPHATAEMIA
     Route: 048
     Dates: start: 20100316, end: 20120806
  7. FOSRENOL [Concomitant]
     Indication: HYPERPHOSPHATAEMIA
     Route: 048
     Dates: start: 20100921, end: 20120806
  8. PURSENNID [Concomitant]
     Indication: CONSTIPATION
     Route: 048
     Dates: start: 20100105, end: 20120806
  9. PENLES [Concomitant]
     Indication: DIALYSIS
     Dosage: 18MG X 2 PIECE PRE-DIALYSIS
     Route: 062
     Dates: start: 20120327, end: 20120806
  10. BERAPROST SODIUM [Concomitant]
     Indication: ARTERIAL OCCLUSIVE DISEASE
     Dosage: DRU REPORTED AS BERADORLIN
     Route: 048
     Dates: start: 20120426, end: 20120806
  11. VOLTAREN SR [Concomitant]
     Indication: PAIN
     Route: 048
     Dates: start: 20100119, end: 20120806
  12. ARTIST [Concomitant]
     Indication: CARDIAC FAILURE
     Route: 048
     Dates: start: 20120604, end: 20120806

REACTIONS (3)
  - Cardio-respiratory arrest [Fatal]
  - Decreased appetite [Unknown]
  - Malaise [Unknown]
